FAERS Safety Report 6061866-5 (Version None)
Quarter: 2009Q1

REPORT INFORMATION
  Report Type: 
  Country: None (occurrence: None)
  Receive Date: 20090202
  Receipt Date: 20090121
  Transmission Date: 20090719
  Serious: Yes (Other)
  Sender: FDA-Public Use
  Company Number: PHHY2009BR02323

PATIENT
  Age: 48 Year
  Sex: Female

DRUGS (2)
  1. DIOVAN [Suspect]
  2. DIOVAN HCT [Concomitant]
     Dosage: 320/12.5 MG

REACTIONS (3)
  - DYSURIA [None]
  - FLUID RETENTION [None]
  - OEDEMA PERIPHERAL [None]
